FAERS Safety Report 20477669 (Version 2)
Quarter: 2022Q1

REPORT INFORMATION
  Report Type: Spontaneous
  Country: FR (occurrence: FR)
  Receive Date: 20220216
  Receipt Date: 20220310
  Transmission Date: 20220423
  Serious: Yes (Hospitalization)
  Sender: FDA-Public Use
  Company Number: None

PATIENT
  Age: 49 Year
  Sex: Male
  Weight: 80 kg

DRUGS (3)
  1. TRAMADOL HYDROCHLORIDE [Suspect]
     Active Substance: TRAMADOL HYDROCHLORIDE
     Indication: Neck pain
     Dosage: 1 DOSAGE FORM, 1/DAY
     Route: 048
     Dates: start: 20220114, end: 20220119
  2. VALIUM [Suspect]
     Active Substance: DIAZEPAM
     Indication: Neck pain
     Dosage: 5 MILLIGRAM, 1/DAY
     Route: 048
     Dates: start: 20220114
  3. KETOPROFEN [Suspect]
     Active Substance: KETOPROFEN
     Indication: Neck pain
     Dosage: 1 DOSAGE FORM, 1/DAY
     Route: 048
     Dates: start: 20220114, end: 20220119

REACTIONS (1)
  - Photosensitivity reaction [Recovering/Resolving]

NARRATIVE: CASE EVENT DATE: 20220115
